FAERS Safety Report 19195927 (Version 2)
Quarter: 2022Q1

REPORT INFORMATION
  Report Type: Spontaneous
  Country: US (occurrence: None)
  Receive Date: 20210429
  Receipt Date: 20220201
  Transmission Date: 20220423
  Serious: Yes (Death, Other)
  Sender: FDA-Public Use
  Company Number: 2021A362984

PATIENT
  Age: 31881 Day
  Sex: Female
  Weight: 63.5 kg

DRUGS (31)
  1. NEXIUM [Suspect]
     Active Substance: ESOMEPRAZOLE MAGNESIUM
     Indication: Dyspepsia
     Dosage: FOR VARIOUS DATES AND YEARS
     Route: 048
  2. NEXIUM [Suspect]
     Active Substance: ESOMEPRAZOLE MAGNESIUM
     Indication: Dyspepsia
     Dosage: FOR VARIOUS DATES AND YEARS
     Route: 048
  3. NEXIUM [Suspect]
     Active Substance: ESOMEPRAZOLE MAGNESIUM
     Indication: Dyspepsia
     Route: 048
     Dates: start: 2013, end: 2017
  4. NEXIUM [Suspect]
     Active Substance: ESOMEPRAZOLE MAGNESIUM
     Indication: Dyspepsia
     Route: 048
     Dates: start: 2013, end: 2017
  5. CRESTOR [Concomitant]
     Active Substance: ROSUVASTATIN CALCIUM
     Indication: Blood cholesterol
     Dates: start: 20130621, end: 20160802
  6. TORSEMIDE [Concomitant]
     Active Substance: TORSEMIDE
     Indication: Drug abuse
     Dates: start: 20171010, end: 20171130
  7. TORSEMIDE [Concomitant]
     Active Substance: TORSEMIDE
     Indication: Drug abuse
     Dates: start: 20171010, end: 20171130
  8. HYDRALAZINE HCL [Concomitant]
     Active Substance: HYDRALAZINE HYDROCHLORIDE
     Indication: Hypertension
     Dates: start: 20160708, end: 20171130
  9. FUROSEMIDE [Concomitant]
     Active Substance: FUROSEMIDE
     Indication: Polyuria
     Dates: start: 20160209, end: 20170915
  10. TRAMADOL [Concomitant]
     Active Substance: TRAMADOL
     Indication: Pain
     Dates: start: 20140715, end: 20171012
  11. CLOPIDOGREL [Concomitant]
     Active Substance: CLOPIDOGREL BISULFATE
     Indication: Cardiac arrest
     Dates: start: 20150814, end: 20160906
  12. LEVOFLOXACIN [Concomitant]
     Active Substance: LEVOFLOXACIN
     Indication: Infection
     Dates: start: 20150813
  13. ASPIRIN [Concomitant]
     Active Substance: ASPIRIN
     Indication: Heart alternation
     Dates: start: 2011, end: 2018
  14. ALKA-SELTZER [Concomitant]
     Active Substance: ANHYDROUS CITRIC ACID\ASPIRIN\SODIUM BICARBONATE
     Dates: start: 2005, end: 2016
  15. PEPTO-BISMOL [Concomitant]
     Active Substance: BISMUTH SUBSALICYLATE
     Dates: start: 2005, end: 2016
  16. CLONIDINE [Concomitant]
     Active Substance: CLONIDINE
     Indication: Myocardial infarction
     Dates: start: 20140821
  17. NITROSTAT [Concomitant]
     Active Substance: NITROGLYCERIN
     Dates: start: 20151116
  18. SPIRONOLACTONE [Concomitant]
     Active Substance: SPIRONOLACTONE
     Dates: start: 20160219
  19. AZITHROMYCIN [Concomitant]
     Active Substance: AZITHROMYCIN
     Dates: start: 20171117
  20. SERTRALIINE [Concomitant]
     Dates: start: 20140915
  21. AMOXICILLIN [Concomitant]
     Active Substance: AMOXICILLIN
     Dates: start: 20150713
  22. BYSTOLIC [Concomitant]
     Active Substance: NEBIVOLOL HYDROCHLORIDE
     Dates: start: 20150507
  23. AMLODIPINE [Concomitant]
     Active Substance: AMLODIPINE BESYLATE
     Dates: start: 20130508
  24. LORAZEPAM [Concomitant]
     Active Substance: LORAZEPAM
     Dates: start: 20130508
  25. VENTOLIN [Concomitant]
     Active Substance: ALBUTEROL SULFATE
  26. METOPROLOL SUCCINATE [Concomitant]
     Active Substance: METOPROLOL SUCCINATE
  27. BREO ELLIPTA [Concomitant]
     Active Substance: FLUTICASONE FUROATE\VILANTEROL TRIFENATATE
  28. ISOSORBIDE MONONITRATE [Concomitant]
     Active Substance: ISOSORBIDE MONONITRATE
  29. MELATONIN [Concomitant]
     Active Substance: MELATONIN
  30. METOLAZONE [Concomitant]
     Active Substance: METOLAZONE
     Dates: start: 20170727
  31. NITROGLYCERIN [Concomitant]
     Active Substance: NITROGLYCERIN
     Dates: start: 20170727

REACTIONS (5)
  - Cardiac disorder [Fatal]
  - Renal failure [Unknown]
  - Chronic kidney disease [Unknown]
  - End stage renal disease [Unknown]
  - Rebound acid hypersecretion [Unknown]

NARRATIVE: CASE EVENT DATE: 20170928
